FAERS Safety Report 25860509 (Version 2)
Quarter: 2025Q3

REPORT INFORMATION
  Report Type: Spontaneous
  Country: GB (occurrence: GB)
  Receive Date: 20250929
  Receipt Date: 20250930
  Transmission Date: 20251021
  Serious: Yes (Other)
  Sender: NOVARTIS
  Company Number: GB-ORG100013279-033016

PATIENT

DRUGS (1)
  1. TERBINAFINE [Suspect]
     Active Substance: TERBINAFINE
     Indication: Product used for unknown indication
     Route: 065

REACTIONS (1)
  - Deafness [Recovered/Resolved]

NARRATIVE: CASE EVENT DATE: 20250826
